FAERS Safety Report 5392077-4 (Version None)
Quarter: 2007Q3

REPORT INFORMATION
  Report Type: 
  Country: None (occurrence: None)
  Receive Date: 20070720
  Receipt Date: 20070703
  Transmission Date: 20080115
  Serious: Yes (Other)
  Sender: FDA-Public Use
  Company Number: US-ASTRAZENECA-2007UW07923

PATIENT
  Sex: Male
  Weight: 81.8 kg

DRUGS (5)
  1. ENTOCORT EC [Suspect]
     Indication: CROHN'S DISEASE
     Route: 048
  2. ENTOCORT EC [Suspect]
     Indication: COLITIS ULCERATIVE
     Route: 048
  3. WARFARIN SODIUM [Concomitant]
     Indication: DEEP VEIN THROMBOSIS
     Route: 048
     Dates: start: 20000101
  4. WARFARIN SODIUM [Concomitant]
     Dosage: DOSE REDUCED
     Route: 048
  5. COLAZAL [Concomitant]

REACTIONS (1)
  - INTERNATIONAL NORMALISED RATIO INCREASED [None]
